FAERS Safety Report 19890576 (Version 1)
Quarter: 2021Q3

REPORT INFORMATION
  Report Type: Spontaneous
  Country: US (occurrence: US)
  Receive Date: 20210928
  Receipt Date: 20210928
  Transmission Date: 20211014
  Serious: No
  Sender: FDA-Public Use
  Company Number: US-AMGEN-USASP2021144696

PATIENT
  Sex: Female

DRUGS (3)
  1. PROLIA [Suspect]
     Active Substance: DENOSUMAB
     Indication: THYROID MASS
     Dosage: UNK
     Route: 065
  2. SYNTHROID [Concomitant]
     Active Substance: LEVOTHYROXINE SODIUM
     Indication: BASEDOW^S DISEASE
     Dosage: 80 MICROGRAM, QD
  3. RADIOACTIVE IODINE SOLUTION [Concomitant]
     Active Substance: SODIUM IODIDE I-131

REACTIONS (5)
  - Rash [Unknown]
  - Skin mass [Unknown]
  - Flatulence [Unknown]
  - Off label use [Unknown]
  - Pruritus [Unknown]
